FAERS Safety Report 12490061 (Version 2)
Quarter: 2016Q3

REPORT INFORMATION
  Report Type: Report from Study
  Country: US (occurrence: US)
  Receive Date: 20160622
  Receipt Date: 20160802
  Transmission Date: 20161109
  Serious: Yes (Hospitalization)
  Sender: FDA-Public Use
  Company Number: US-ACTELION-A-US2016-135858

PATIENT
  Age: 78 Year
  Sex: Female

DRUGS (3)
  1. REMODULIN [Concomitant]
     Active Substance: TREPROSTINIL
  2. OPSUMIT [Suspect]
     Active Substance: MACITENTAN
     Indication: PULMONARY HYPERTENSION
     Dosage: 10 MG, QD
     Route: 048
     Dates: start: 20140711
  3. TYVASO [Concomitant]
     Active Substance: TREPROSTINIL

REACTIONS (5)
  - Pneumonia [Unknown]
  - Malaise [Unknown]
  - Metapneumovirus infection [Unknown]
  - Cough [Unknown]
  - Dizziness [Unknown]
